FAERS Safety Report 6326329-8 (Version None)
Quarter: 2009Q3

REPORT INFORMATION
  Report Type: 
  Country: None (occurrence: None)
  Receive Date: 20090821
  Receipt Date: 20090806
  Transmission Date: 20100115
  Serious: Yes (Hospitalization)
  Sender: FDA-Public Use
  Company Number: 1-19429546

PATIENT
  Age: 33 Year
  Sex: Female
  Weight: 56.8811 kg

DRUGS (4)
  1. AMMONUL [Suspect]
     Indication: AMMONIA INCREASED
     Dosage: CONTINUOUS INFUSION, IV
     Dates: start: 20090101, end: 20090803
  2. BUPHENYL [Suspect]
     Indication: AMINO ACID METABOLISM DISORDER
     Dosage: 6 GRAMS EVERY 8 HOURS, ORAL
     Route: 048
     Dates: start: 20090625
  3. VITAMIN AND MINERAL PRENATAL SUPPLEMENT W/ FOLIC ACID CAP [Concomitant]
  4. KEPPRA [Concomitant]

REACTIONS (12)
  - AGITATION [None]
  - ENCEPHALOPATHY [None]
  - FATIGUE [None]
  - HEPARIN-INDUCED THROMBOCYTOPENIA [None]
  - HYPERPLASIA [None]
  - NAUSEA [None]
  - POLYP [None]
  - PULMONARY ARTERIAL HYPERTENSION [None]
  - PULMONARY EMBOLISM [None]
  - VOCAL CORD PARALYSIS [None]
  - VOMITING [None]
  - YAWNING [None]
